FAERS Safety Report 9802318 (Version 1)
Quarter: 2014Q1

REPORT INFORMATION
  Report Type: Spontaneous
  Country: PL (occurrence: PL)
  Receive Date: 20140107
  Receipt Date: 20140107
  Transmission Date: 20141002
  Serious: Yes (Other)
  Sender: FDA-Public Use
  Company Number: PHHY2014PL000943

PATIENT
  Sex: Female
  Weight: 58.7 kg

DRUGS (4)
  1. METHOTREXAT [Suspect]
     Indication: RHEUMATOID ARTHRITIS
     Dosage: 15 MG, QW
     Route: 048
     Dates: start: 201206, end: 201207
  2. METYPRED [Concomitant]
  3. IPP [Concomitant]
  4. ACIDUM FOLICUM [Concomitant]

REACTIONS (3)
  - Arrhythmia [Recovered/Resolved]
  - Tachycardia paroxysmal [Recovered/Resolved]
  - Dyspnoea [Recovered/Resolved]
